FAERS Safety Report 4503445-4 (Version None)
Quarter: 2004Q4

REPORT INFORMATION
  Report Type: 
  Country: None (occurrence: None)
  Receive Date: 20041112
  Receipt Date: 20041102
  Transmission Date: 20050328
  Serious: Yes (Hospitalization, Disabling)
  Sender: FDA-Public Use
  Company Number: 2004233918FR

PATIENT
  Sex: Female

DRUGS (1)
  1. XALATAN [Suspect]
     Indication: OCULAR HYPERTENSION
     Dosage: OPHTHALMIC
     Route: 047
     Dates: start: 20020101

REACTIONS (2)
  - IRIS NEOPLASM [None]
  - MALIGNANT MELANOMA [None]
